FAERS Safety Report 5245230-4 (Version None)
Quarter: 2007Q1

REPORT INFORMATION
  Report Type: 
  Country: None (occurrence: None)
  Receive Date: 20070223
  Receipt Date: 20070216
  Transmission Date: 20070707
  Serious: Yes (Other)
  Sender: FDA-Public Use
  Company Number: US-ROCHE-483026

PATIENT
  Age: 38 Year
  Sex: Male

DRUGS (1)
  1. VESANOID [Suspect]
     Dosage: THE PATIENT WAS SCHEDULED TO TAKE VESANOID FOR A TOTAL OF 1 YEAR.  HE WAS IN HIS 3RD OR 4TH ROUND A+
     Route: 065
     Dates: start: 20060915

REACTIONS (2)
  - GENERALISED RESISTANCE TO THYROID HORMONE [None]
  - PRIMARY HYPOTHYROIDISM [None]
